FAERS Safety Report 19443982 (Version 2)
Quarter: 2021Q2

REPORT INFORMATION
  Report Type: Spontaneous
  Country: US (occurrence: US)
  Receive Date: 20210621
  Receipt Date: 20210625
  Transmission Date: 20210717
  Serious: Yes (Other)
  Sender: FDA-Public Use
  Company Number: US-TEVA-2021-US-1923823

PATIENT
  Age: 65 Year
  Sex: Female

DRUGS (8)
  1. GLIPIZIDE TEVA [Suspect]
     Active Substance: GLIPIZIDE
     Indication: DIABETES MELLITUS
     Dosage: 20 MILLIGRAM DAILY;
     Route: 065
     Dates: start: 2017, end: 2018
  2. METFORMIN [Concomitant]
     Active Substance: METFORMIN HYDROCHLORIDE
  3. NATEGLINIDE. [Concomitant]
     Active Substance: NATEGLINIDE
  4. GLIPIZIDE APOTEC [Suspect]
     Active Substance: GLIPIZIDE
     Indication: DIABETES MELLITUS
     Route: 065
     Dates: end: 202011
  5. GLIPIZIDE ACTAVIS [Suspect]
     Active Substance: GLIPIZIDE
     Indication: DIABETES MELLITUS
     Route: 065
  6. LEVEMIR [Concomitant]
     Active Substance: INSULIN DETEMIR
  7. GLYBURIDE. [Concomitant]
     Active Substance: GLYBURIDE
  8. INSULIN [Concomitant]
     Active Substance: INSULIN NOS

REACTIONS (20)
  - Body height decreased [Not Recovered/Not Resolved]
  - Erythema [Recovered/Resolved]
  - Blood glucose decreased [Unknown]
  - Spinal compression fracture [Not Recovered/Not Resolved]
  - Depression [Not Recovered/Not Resolved]
  - Osteoporosis [Not Recovered/Not Resolved]
  - Drug ineffective [Unknown]
  - Arthralgia [Not Recovered/Not Resolved]
  - Pruritus [Recovered/Resolved]
  - Blood glucose increased [Unknown]
  - Glycosylated haemoglobin increased [Recovered/Resolved]
  - Drug hypersensitivity [Unknown]
  - Metabolic disorder [Unknown]
  - Feeling abnormal [Unknown]
  - Sleep disorder [Not Recovered/Not Resolved]
  - Eating disorder [Not Recovered/Not Resolved]
  - Vein disorder [Not Recovered/Not Resolved]
  - Dental caries [Not Recovered/Not Resolved]
  - Lip swelling [Recovered/Resolved]
  - Weight decreased [Not Recovered/Not Resolved]

NARRATIVE: CASE EVENT DATE: 2018
